FAERS Safety Report 8772465 (Version 1)
Quarter: 2012Q4

REPORT INFORMATION
  Report Type: 
  Country: US (occurrence: US)
  Receive Date: 20120905
  Receipt Date: 20120905
  Transmission Date: 20130627
  Serious: No
  Sender: FDA-Public Use
  Company Number: US-B.I. PHARMACEUTICALS,INC./RIDGEFIELD-2012-BP-21057BP

PATIENT
  Age: 61 Year
  Sex: Female

DRUGS (7)
  1. SPIRIVA [Suspect]
     Indication: CHRONIC OBSTRUCTIVE PULMONARY DISEASE
     Dosage: 18 mcg
     Route: 055
     Dates: start: 2011
  2. SPIRIVA [Suspect]
     Route: 048
     Dates: start: 20120828, end: 20120828
  3. GABAPENTIN [Concomitant]
     Route: 048
  4. PREDNISONE [Concomitant]
     Route: 048
  5. VERAPAMIL [Concomitant]
     Route: 048
  6. CO Q 10 [Concomitant]
     Route: 048
  7. ASPIRIN [Concomitant]
     Route: 048

REACTIONS (1)
  - Incorrect route of drug administration [Recovered/Resolved]
